FAERS Safety Report 17682365 (Version 1)
Quarter: 2020Q2

REPORT INFORMATION
  Report Type: Spontaneous
  Country: LK (occurrence: LK)
  Receive Date: 20200418
  Receipt Date: 20200418
  Transmission Date: 20200714
  Serious: Yes (Hospitalization, Other)
  Sender: FDA-Public Use
  Company Number: LK-MICRO LABS LIMITED-ML2020-01298

PATIENT
  Age: 9 Year
  Sex: Male

DRUGS (1)
  1. TRANEXAMIC ACID. [Suspect]
     Active Substance: TRANEXAMIC ACID
     Indication: HAEMORRHAGE
     Dosage: FOR 4 CONSECUTIVE DAYS (FROM DAY 2 TO DAY 5)
     Route: 042

REACTIONS (1)
  - Acute kidney injury [Recovered/Resolved]
